FAERS Safety Report 8787043 (Version 3)
Quarter: 2013Q1

REPORT INFORMATION
  Report Type: Report from Study
  Country: DE (occurrence: DE)
  Receive Date: 20120914
  Receipt Date: 20130124
  Transmission Date: 20140127
  Serious: Yes (Hospitalization)
  Sender: FDA-Public Use
  Company Number: DE-ROCHE-1125218

PATIENT
  Age: 54 Year
  Sex: Female
  Weight: 74 kg

DRUGS (6)
  1. BEVACIZUMAB [Suspect]
     Indication: OVARIAN EPITHELIAL CANCER
     Dosage: LAST DOSE PRIOR TO SAE : 03/SEP/2012
     Route: 042
     Dates: start: 20120602
  2. BEVACIZUMAB [Suspect]
     Dosage: DOSE REDUCED
     Route: 042
  3. CARBOPLATIN [Suspect]
     Indication: OVARIAN EPITHELIAL CANCER
     Dosage: LAST DOSE PRIOR TO SAE : 03/SEP/2012
     Route: 042
     Dates: start: 20120611
  4. CARBOPLATIN [Suspect]
     Dosage: DOSE REDUCED
     Route: 042
  5. PACLITAXEL [Suspect]
     Indication: OVARIAN EPITHELIAL CANCER
     Dosage: LAST DOSE PRIOR TO SAE : 03/SEP/2012
     Route: 042
     Dates: start: 20120611
  6. PACLITAXEL [Suspect]
     Dosage: DOSE REDUCED
     Route: 042

REACTIONS (1)
  - General physical health deterioration [Not Recovered/Not Resolved]
